FAERS Safety Report 18907996 (Version 2)
Quarter: 2021Q3

REPORT INFORMATION
  Report Type: Spontaneous
  Country: GB (occurrence: US)
  Receive Date: 20210218
  Receipt Date: 20210727
  Transmission Date: 20211014
  Serious: Yes (Other)
  Sender: FDA-Public Use
  Company Number: GB-TEVA-2021-GB-1879742

PATIENT
  Age: 58 Year
  Sex: Male

DRUGS (1)
  1. CISPLATIN. [Suspect]
     Active Substance: CISPLATIN
     Indication: LUNG NEOPLASM MALIGNANT
     Dosage: A CYCLE EVERY 3 WEEKS SCHEDULED FOR 4 MONTHS
     Route: 065

REACTIONS (5)
  - Nausea [Recovered/Resolved]
  - Cardiac disorder [Unknown]
  - Dyspnoea [Unknown]
  - Decreased activity [Unknown]
  - Fatigue [Recovered/Resolved]
